FAERS Safety Report 7142050-0 (Version None)
Quarter: 2010Q4

REPORT INFORMATION
  Report Type: 
  Country: None (occurrence: None)
  Receive Date: 20101207
  Receipt Date: 20101130
  Transmission Date: 20110411
  Serious: Yes (Other)
  Sender: FDA-Public Use
  Company Number: B0687173A

PATIENT
  Sex: Female

DRUGS (1)
  1. VENTOLIN [Suspect]
     Indication: ASTHMA
     Route: 055

REACTIONS (4)
  - ASTHMA [None]
  - DRUG INEFFECTIVE [None]
  - DYSGEUSIA [None]
  - PRODUCT QUALITY ISSUE [None]
